FAERS Safety Report 5806557-8 (Version None)
Quarter: 2008Q3

REPORT INFORMATION
  Report Type: 
  Country: None (occurrence: None)
  Receive Date: 20080710
  Receipt Date: 20080702
  Transmission Date: 20090109
  Serious: Yes (Other)
  Sender: FDA-Public Use
  Company Number: US-PFIZER INC-2008056589

PATIENT
  Age: 39 Year
  Sex: Male

DRUGS (7)
  1. NELFINAVIR MESILATE [Suspect]
     Indication: HIV INFECTION
     Dosage: DAILY DOSE:1250MG
     Route: 065
  2. WARFARIN SODIUM [Interacting]
     Dosage: DAILY DOSE:5MG
  3. WARFARIN SODIUM [Interacting]
     Dosage: DAILY DOSE:20MG
  4. WARFARIN SODIUM [Interacting]
     Dosage: DAILY DOSE:12.5MG
  5. ENOXAPARIN SODIUM [Concomitant]
  6. TENOFOVIR [Concomitant]
     Dosage: DAILY DOSE:300MG
  7. DIDANOSINE [Concomitant]
     Dosage: DAILY DOSE:250MG

REACTIONS (2)
  - DRUG EFFECT DECREASED [None]
  - DRUG INTERACTION [None]
